FAERS Safety Report 7016529-6 (Version None)
Quarter: 2010Q3

REPORT INFORMATION
  Report Type: 
  Country: None (occurrence: None)
  Receive Date: 20100927
  Receipt Date: 20100922
  Transmission Date: 20110219
  Serious: Yes (Hospitalization)
  Sender: FDA-Public Use
  Company Number: A0836753A

PATIENT
  Age: 74 Year
  Sex: Male
  Weight: 134.1 kg

DRUGS (1)
  1. AVANDIA [Suspect]
     Route: 048

REACTIONS (5)
  - CARDIAC FAILURE CONGESTIVE [None]
  - CORONARY ARTERY BYPASS [None]
  - DYSPEPSIA [None]
  - MYOCARDIAL INFARCTION [None]
  - NAUSEA [None]
